FAERS Safety Report 6763307-9 (Version None)
Quarter: 2010Q2

REPORT INFORMATION
  Report Type: 
  Country: None (occurrence: None)
  Receive Date: 20100610
  Receipt Date: 20100603
  Transmission Date: 20101027
  Serious: Yes (Death, Hospitalization)
  Sender: FDA-Public Use
  Company Number: US-JNJFOC-20100602734

PATIENT
  Age: 68 Year
  Sex: Male
  Weight: 86.6 kg

DRUGS (7)
  1. LOPERAMIDE [Suspect]
     Indication: DRUG USE FOR UNKNOWN INDICATION
     Route: 065
  2. CAMPTOSAR [Suspect]
     Indication: COLON CANCER
     Route: 042
  3. CAMPTOSAR [Suspect]
     Dosage: 21 DAYS
     Route: 042
  4. OXALIPLATIN [Suspect]
     Indication: COLON CANCER
     Route: 042
  5. OXALIPLATIN [Suspect]
     Dosage: Q21 DAYS
     Route: 042
  6. LISINOPRIL [Concomitant]
     Route: 065
  7. TERAZOSIN HCL [Concomitant]
     Route: 065

REACTIONS (5)
  - COLITIS [None]
  - INTESTINAL ISCHAEMIA [None]
  - PERITONITIS [None]
  - RESPIRATORY ARREST [None]
  - SEPTIC SHOCK [None]
